FAERS Safety Report 8459683-1 (Version None)
Quarter: 2012Q2

REPORT INFORMATION
  Report Type: 
  Country: None (occurrence: None)
  Receive Date: 20120622
  Receipt Date: 20120613
  Transmission Date: 20120825
  Serious: Yes (Hospitalization, Other)
  Sender: FDA-Public Use
  Company Number: DE-BRISTOL-MYERS SQUIBB COMPANY-16509226

PATIENT
  Age: 65 Year
  Sex: Female
  Weight: 72 kg

DRUGS (9)
  1. PEMETREXED DISODIUM [Suspect]
     Indication: NON-SMALL CELL LUNG CANCER
     Route: 042
     Dates: start: 20120320, end: 20120320
  2. FOLIC ACID [Concomitant]
     Indication: PROPHYLAXIS
     Dates: start: 20120309
  3. RAMIPRIL [Concomitant]
     Indication: HYPERTENSION
     Dates: start: 20080101
  4. NOVALGIN [Concomitant]
     Dates: start: 20110101
  5. DEXAMETHASONE [Concomitant]
     Indication: PROPHYLAXIS
     Dates: start: 20120319, end: 20120321
  6. CITALOPRAM HYDROBROMIDE [Concomitant]
     Indication: DEPRESSION
     Dates: start: 20080101
  7. CISPLATIN [Suspect]
     Indication: NON-SMALL CELL LUNG CANCER
     Route: 042
     Dates: start: 20120320, end: 20120320
  8. VITAMIN B-12 [Concomitant]
     Indication: PROPHYLAXIS
     Dates: start: 20120309
  9. ANGELIQ [Concomitant]
     Indication: MENOPAUSE
     Dates: start: 19970101

REACTIONS (3)
  - HYPONATRAEMIA [None]
  - CONVULSION [None]
  - LUMBAR VERTEBRAL FRACTURE [None]
